FAERS Safety Report 14060997 (Version 3)
Quarter: 2017Q4

REPORT INFORMATION
  Report Type: Report from Study
  Country: None (occurrence: BE)
  Receive Date: 20171007
  Receipt Date: 20171222
  Transmission Date: 20180321
  Serious: Yes (Hospitalization)
  Sender: FDA-Public Use
  Company Number: BE-ABBVIE-16K-013-1715746-00

PATIENT
  Sex: Male

DRUGS (10)
  1. DUODOPA [Suspect]
     Active Substance: CARBIDOPA\LEVODOPA
     Dosage: MD=4.5ML?CD=2.5  ML/HR DURING 16HRS?EDA=1.5ML
     Route: 050
     Dates: start: 20171006, end: 2017
  2. DUODOPA [Suspect]
     Active Substance: CARBIDOPA\LEVODOPA
     Indication: PARKINSON^S DISEASE
     Dosage: AM= 6.5 ML; CD= 3.1 ML/H DURING 16 HRS; ED= 1.5 ML
     Route: 050
     Dates: start: 20150209, end: 20150622
  3. DUODOPA [Suspect]
     Active Substance: CARBIDOPA\LEVODOPA
     Dosage: DOSES CONTINUOUSLY MONITORED AND ADAPTED
     Route: 050
     Dates: start: 20150622, end: 20160614
  4. DUODOPA [Suspect]
     Active Substance: CARBIDOPA\LEVODOPA
     Dosage: AM= 5.3 ML; CD= 2.8 ML/H DURING 16 HRS; ED= 1.3 ML
     Route: 050
     Dates: start: 20160614, end: 20161026
  5. DUODOPA [Suspect]
     Active Substance: CARBIDOPA\LEVODOPA
     Dosage: AM= 5.5 ML; CD= 2.8 ML/H DURING 16 HRS; ED= 1.1 ML
     Route: 050
     Dates: start: 20161026, end: 20171006
  6. RIVOTRIL [Concomitant]
     Active Substance: CLONAZEPAM
     Indication: PRODUCT USED FOR UNKNOWN INDICATION
  7. DUODOPA [Suspect]
     Active Substance: CARBIDOPA\LEVODOPA
     Dosage: MD=4.5ML?CD=5 ML/HR DURING 16HRS?EDA=3ML
     Route: 050
     Dates: start: 2017
  8. DAFALGAN [Concomitant]
     Active Substance: ACETAMINOPHEN
  9. DAFALGAN [Concomitant]
     Active Substance: ACETAMINOPHEN
     Indication: PRODUCT USED FOR UNKNOWN INDICATION
  10. PANTOMED [Concomitant]
     Indication: PRODUCT USED FOR UNKNOWN INDICATION

REACTIONS (9)
  - General physical health deterioration [Recovering/Resolving]
  - Hypophagia [Unknown]
  - Agitation [Unknown]
  - Gait disturbance [Not Recovered/Not Resolved]
  - Gait inability [Not Recovered/Not Resolved]
  - Insomnia [Recovering/Resolving]
  - Mood altered [Not Recovered/Not Resolved]
  - Decreased activity [Recovering/Resolving]
  - Weight decreased [Unknown]
